FAERS Safety Report 23837186 (Version 1)
Quarter: 2024Q2

REPORT INFORMATION
  Report Type: Spontaneous
  Country: US (occurrence: US)
  Receive Date: 20240509
  Receipt Date: 20240509
  Transmission Date: 20240715
  Serious: No
  Sender: FDA-Public Use
  Company Number: US-ALNYLAM PHARMACEUTICALS, INC.-ALN-2024-002550

PATIENT

DRUGS (1)
  1. GIVLAARI [Suspect]
     Active Substance: GIVOSIRAN SODIUM
     Indication: Product used for unknown indication
     Route: 065

REACTIONS (7)
  - Renal disorder [Unknown]
  - Porphyria acute [Unknown]
  - Hepatic lesion [Unknown]
  - Drug effect less than expected [Unknown]
  - Hepatic enzyme increased [Unknown]
  - Pain [Unknown]
  - Prescribed underdose [Unknown]
